FAERS Safety Report 10466670 (Version 1)
Quarter: 2014Q3

REPORT INFORMATION
  Report Type: Spontaneous
  Country: IN (occurrence: None)
  Receive Date: 20140918
  Receipt Date: 20140918
  Transmission Date: 20150326
  Serious: Yes (Other)
  Sender: FDA-Public Use
  Company Number: 2014JUB00133

PATIENT
  Age: 60 Year
  Sex: Male

DRUGS (2)
  1. OLANZAPINE (OLANZAPINE) UNKNOWN [Suspect]
     Active Substance: OLANZAPINE
     Indication: BIPOLAR I DISORDER
  2. SODIUM VALPROATE [Concomitant]
     Active Substance: VALPROATE SODIUM

REACTIONS (8)
  - Mania [None]
  - Tremor [None]
  - Drug effect decreased [None]
  - Bradykinesia [None]
  - Muscle rigidity [None]
  - Deafness neurosensory [None]
  - Disease recurrence [None]
  - Ototoxicity [None]
